FAERS Safety Report 21839622 (Version 2)
Quarter: 2023Q1

REPORT INFORMATION
  Report Type: Spontaneous
  Country: BE (occurrence: BE)
  Receive Date: 20230109
  Receipt Date: 20230120
  Transmission Date: 20230417
  Serious: Yes (Death)
  Sender: FDA-Public Use
  Company Number: BE-BIOGEN-2023BI01178871

PATIENT
  Age: 57 Year
  Sex: Female

DRUGS (5)
  1. TYSABRI [Suspect]
     Active Substance: NATALIZUMAB
     Indication: Relapsing-remitting multiple sclerosis
     Dosage: DATE OF MOST RECENT TREATMENT PRIOR TO EVENT - 08-MAY-2013
     Route: 050
     Dates: start: 20120430
  2. DALFAMPRIDINE [Suspect]
     Active Substance: DALFAMPRIDINE
     Indication: Multiple sclerosis
     Route: 050
     Dates: start: 201706
  3. SIPONIMOD [Concomitant]
     Active Substance: SIPONIMOD
     Indication: Secondary progressive multiple sclerosis
     Route: 050
     Dates: start: 202204
  4. BISOPROLOL FUMARATE\HYDROCHLOROTHIAZIDE [Concomitant]
     Active Substance: BISOPROLOL FUMARATE\HYDROCHLOROTHIAZIDE
     Indication: Hypertension
     Dosage: 5/12,5MG/PO/ONCE A DAY
     Route: 050
     Dates: start: 201706
  5. ATACAND [Concomitant]
     Active Substance: CANDESARTAN CILEXETIL
     Indication: Hypertension
     Route: 050
     Dates: start: 201710

REACTIONS (1)
  - Arrhythmia [Fatal]

NARRATIVE: CASE EVENT DATE: 20221220
